FAERS Safety Report 5511442-5 (Version None)
Quarter: 2007Q4

REPORT INFORMATION
  Report Type: 
  Country: None (occurrence: None)
  Receive Date: 20071107
  Receipt Date: 20071024
  Transmission Date: 20080405
  Serious: Yes (Death, Life-Threatening, Hospitalization, Disabling, Other)
  Sender: FDA-Public Use
  Company Number: CLOF-10691

PATIENT
  Sex: Female
  Weight: 50.6 kg

DRUGS (6)
  1. CLOFARABINE. MFR: GENZYME [Suspect]
     Indication: DRUG USE FOR UNKNOWN INDICATION
     Dosage: 40 MG/M2 QD X 5 IV
     Route: 042
     Dates: start: 20070823, end: 20070829
  2. CYTARABINE [Suspect]
     Indication: DRUG USE FOR UNKNOWN INDICATION
     Dosage: 18 MG/KG QD X 5 IV
     Route: 042
     Dates: start: 20070823, end: 20070829
  3. URSEODEOXYCHOLIC ACID [Concomitant]
  4. ALLOPURINOL [Concomitant]
  5. BACTRIM [Concomitant]
  6. AMPHOTERICIN B [Concomitant]

REACTIONS (5)
  - ACUTE LYMPHOCYTIC LEUKAEMIA RECURRENT [None]
  - DISEASE PROGRESSION [None]
  - NO THERAPEUTIC RESPONSE [None]
  - PANCYTOPENIA [None]
  - SYSTEMIC MYCOSIS [None]
